FAERS Safety Report 25135915 (Version 5)
Quarter: 2025Q2

REPORT INFORMATION
  Report Type: Spontaneous
  Country: US (occurrence: US)
  Receive Date: 20250328
  Receipt Date: 20250624
  Transmission Date: 20250716
  Serious: Yes (Other)
  Sender: ABBVIE
  Company Number: US-ABBVIE-6201695

PATIENT
  Age: 32 Year
  Sex: Female
  Weight: 72.121 kg

DRUGS (1)
  1. LILETTA [Suspect]
     Active Substance: LEVONORGESTREL
     Indication: Product used for unknown indication
     Route: 015
     Dates: start: 20170203, end: 20250319

REACTIONS (3)
  - Intra-uterine contraceptive device removal [Recovered/Resolved]
  - Device breakage [Unknown]
  - Complication of device removal [Unknown]

NARRATIVE: CASE EVENT DATE: 20250320
